FAERS Safety Report 5038689-9 (Version None)
Quarter: 2006Q2

REPORT INFORMATION
  Report Type: 
  Country: None (occurrence: None)
  Receive Date: 20060629
  Receipt Date: 20060306
  Transmission Date: 20061013
  Serious: No
  Sender: FDA-Public Use
  Company Number: US-BRISTOL-MYERS SQUIBB COMPANY-13306030

PATIENT
  Age: 47 Year
  Sex: Female

DRUGS (3)
  1. REYATAZ [Suspect]
     Indication: HIV INFECTION
     Dates: start: 20050902
  2. INTERFERON [Suspect]
     Indication: HEPATITIS
     Dates: start: 20051205
  3. RIBAVIRIN [Suspect]
     Indication: HEPATITIS
     Dates: start: 20051205

REACTIONS (3)
  - JAUNDICE [None]
  - NAUSEA [None]
  - NEUTROPENIA [None]
